FAERS Safety Report 15260795 (Version 1)
Quarter: 2018Q3

REPORT INFORMATION
  Report Type: Spontaneous
  Country: US (occurrence: US)
  Receive Date: 20180719
  Receipt Date: 20180719
  Transmission Date: 20181010
  Serious: Yes (Disabling, Other)
  Sender: FDA-Public Use
  Company Number: None

PATIENT
  Age: 65 Year
  Sex: Female
  Weight: 56.25 kg

DRUGS (14)
  1. CIPRO [Suspect]
     Active Substance: CIPROFLOXACIN HYDROCHLORIDE
     Indication: GASTROINTESTINAL INFECTION
     Route: 048
     Dates: start: 20150326, end: 20150531
  2. 5MGHF [Concomitant]
  3. MONTHLY MEYER COCKTAIL (IV OF B AND OTHER VITAMINS) [Concomitant]
  4. VITAMIN D [Concomitant]
     Active Substance: CHOLECALCIFEROL
  5. ADRENAL ASSIST [Concomitant]
  6. VITAMIN B COMPLEX [Concomitant]
     Active Substance: CYANOCOBALAMIN\DEXPANTHENOL\NIACINAMIDE\PYRIDOXINE HYDROCHLORIDE\RIBOFLAVIN 5^-PHOSPHATE SODIUM\THIAMINE HYDROCHLORIDE\VITAMIN B COMPLEX
  7. VITAMIN E [Concomitant]
     Active Substance: .ALPHA.-TOCOPHEROL
  8. PRAVASTATIN. [Concomitant]
     Active Substance: PRAVASTATIN
  9. VITAMIN C [Concomitant]
     Active Substance: ASCORBIC ACID
  10. FLAGYL [Suspect]
     Active Substance: METRONIDAZOLE\METRONIDAZOLE HYDROCHLORIDE
     Indication: SINUSITIS
  11. ALPRAZALAM [Concomitant]
  12. PURE ENCAPSULATIONS ADRENAL [Concomitant]
  13. GINGKO BILOBA [Concomitant]
     Active Substance: GINKGO
  14. PRAVASTATIN 10 [Concomitant]

REACTIONS (13)
  - Muscle spasms [None]
  - Pyrexia [None]
  - Tremor [None]
  - Depression [None]
  - Chills [None]
  - Abdominal distension [None]
  - Diverticulitis [None]
  - Abdominal pain upper [None]
  - Diarrhoea haemorrhagic [None]
  - Decreased appetite [None]
  - Crying [None]
  - Clostridium difficile infection [None]
  - Anxiety [None]
